FAERS Safety Report 6077149-3 (Version None)
Quarter: 2009Q1

REPORT INFORMATION
  Report Type: 
  Country: None (occurrence: None)
  Receive Date: 20090211
  Receipt Date: 20090202
  Transmission Date: 20090719
  Serious: Yes (Hospitalization)
  Sender: FDA-Public Use
  Company Number: GXKR2009GB01373

PATIENT

DRUGS (4)
  1. WARFARIN SODIUM [Suspect]
  2. SIMVASTATIN [Suspect]
  3. DICLOFENAC SODIUM [Suspect]
  4. PREDNISOLONE [Suspect]

REACTIONS (4)
  - CONTUSION [None]
  - DRUG EFFECT INCREASED [None]
  - FALL [None]
  - INTERNATIONAL NORMALISED RATIO INCREASED [None]
